FAERS Safety Report 9022009 (Version 1)
Quarter: 2013Q1

REPORT INFORMATION
  Report Type: Spontaneous
  Country: US (occurrence: US)
  Receive Date: 20130118
  Receipt Date: 20130118
  Transmission Date: 20140127
  Serious: No
  Sender: FDA-Public Use
  Company Number: US-SANOFI-AVENTIS-2012SA035802

PATIENT
  Age: 82 Year
  Sex: Female
  Weight: 65.7 kg

DRUGS (7)
  1. LASIX [Suspect]
     Indication: HYPERTENSION
     Route: 048
     Dates: start: 2011, end: 201204
  2. LASIX [Suspect]
     Indication: HYPERTENSION
     Route: 048
     Dates: start: 2012
  3. METFORMIN [Concomitant]
  4. PROPRANOLOL [Concomitant]
  5. POTASSIUM [Concomitant]
  6. LOVASTATIN [Concomitant]
  7. WARFARIN [Concomitant]

REACTIONS (2)
  - Abdominal pain upper [Recovered/Resolved]
  - Nausea [Recovered/Resolved]
